FAERS Safety Report 8915912 (Version 2)
Quarter: 2012Q4

REPORT INFORMATION
  Report Type: 
  Country: US (occurrence: US)
  Receive Date: 20121119
  Receipt Date: 20121204
  Transmission Date: 20130627
  Serious: Yes (Other)
  Sender: FDA-Public Use
  Company Number: US-PFIZER INC-2012288454

PATIENT
  Age: 70 Year
  Sex: Male
  Weight: 79.37 kg

DRUGS (3)
  1. LYRICA [Suspect]
     Indication: PAIN
     Dosage: 50 mg, 3x/day
     Route: 048
     Dates: start: 20121114, end: 201211
  2. LYRICA [Suspect]
     Dosage: 50 mg, 1x/day
     Route: 048
     Dates: start: 201211
  3. HYDROCODONE [Concomitant]
     Dosage: 10/325, UNK

REACTIONS (4)
  - Sudden onset of sleep [Unknown]
  - Somnolence [Unknown]
  - Dysuria [Unknown]
  - Drug hypersensitivity [Unknown]
